FAERS Safety Report 10413862 (Version 1)
Quarter: 2014Q3

REPORT INFORMATION
  Report Type: Spontaneous
  Country: FR (occurrence: FR)
  Receive Date: 20140827
  Receipt Date: 20140827
  Transmission Date: 20150326
  Serious: Yes (Hospitalization, Other)
  Sender: FDA-Public Use
  Company Number: FR-PFIZER INC-2014232452

PATIENT
  Age: 64 Year
  Sex: Male

DRUGS (14)
  1. ZANIDIP [Concomitant]
     Active Substance: LERCANIDIPINE HYDROCHLORIDE
  2. LASILIX [Concomitant]
     Active Substance: FUROSEMIDE
  3. ASPEGIC [Concomitant]
     Active Substance: ASPIRIN DL-LYSINE
  4. EZETROL [Concomitant]
     Active Substance: EZETIMIBE
  5. COVERSYL [Concomitant]
     Active Substance: PERINDOPRIL
  6. ATENOLOL. [Concomitant]
     Active Substance: ATENOLOL
  7. AMOXICILLIN TRIHYDRATE [Suspect]
     Active Substance: AMOXICILLIN
     Indication: BRONCHITIS
     Dosage: UNK
     Route: 048
     Dates: start: 20140605, end: 20140615
  8. ZITHROMAX [Suspect]
     Active Substance: AZITHROMYCIN DIHYDRATE
     Dosage: UNK
     Route: 048
     Dates: start: 20140610, end: 20140612
  9. LANTUS [Concomitant]
     Active Substance: INSULIN GLARGINE
  10. HYTACAND [Concomitant]
     Active Substance: CANDESARTAN CILEXETIL\HYDROCHLOROTHIAZIDE
  11. CALCIPARINE [Concomitant]
     Active Substance: HEPARIN CALCIUM
  12. ZYLORIC [Suspect]
     Active Substance: ALLOPURINOL
     Indication: GOUT
     Dosage: UNK
     Route: 048
     Dates: start: 20140515, end: 20140615
  13. PLAVIX [Concomitant]
     Active Substance: CLOPIDOGREL BISULFATE
  14. AMAREL [Concomitant]
     Active Substance: GLIMEPIRIDE

REACTIONS (3)
  - Roseolovirus test positive [Unknown]
  - Epstein-Barr virus test positive [Unknown]
  - Drug reaction with eosinophilia and systemic symptoms [Recovered/Resolved]

NARRATIVE: CASE EVENT DATE: 20140615
